FAERS Safety Report 24287047 (Version 1)
Quarter: 2024Q3

REPORT INFORMATION
  Report Type: Report from Study
  Country: US (occurrence: None)
  Receive Date: 20240905
  Receipt Date: 20240905
  Transmission Date: 20241017
  Serious: Yes (Other)
  Sender: ASTRAZENECA
  Company Number: 2024A196700

PATIENT
  Sex: Female
  Weight: 68 kg

DRUGS (3)
  1. TEZSPIRE [Suspect]
     Active Substance: TEZEPELUMAB-EKKO
     Indication: Asthma
     Route: 058
  2. OMEPRAZOLE [Suspect]
     Active Substance: OMEPRAZOLE
     Route: 048
  3. QUETIAPINE [Suspect]
     Active Substance: QUETIAPINE
     Route: 048

REACTIONS (15)
  - Interstitial lung disease [Unknown]
  - Sinusitis [Unknown]
  - Secretion discharge [Unknown]
  - Cough [Unknown]
  - Pain in extremity [Unknown]
  - Wheezing [Unknown]
  - Depression [Unknown]
  - Anaemia [Unknown]
  - Obesity [Unknown]
  - Oedema [Unknown]
  - Pain in extremity [Unknown]
  - Back pain [Unknown]
  - Dyspnoea [Unknown]
  - Productive cough [Unknown]
  - Sputum discoloured [Unknown]
